FAERS Safety Report 5751015-2 (Version None)
Quarter: 2008Q2

REPORT INFORMATION
  Report Type: 
  Country: None (occurrence: None)
  Receive Date: 20080528
  Receipt Date: 20080519
  Transmission Date: 20081010
  Serious: Yes (Other)
  Sender: FDA-Public Use
  Company Number: BR-ABBOTT-08P-020-0452587-00

PATIENT
  Sex: Female
  Weight: 64 kg

DRUGS (4)
  1. HUMIRA [Suspect]
     Indication: RHEUMATOID ARTHRITIS
     Dosage: 1 APPLICATION EVERY 14 DAYS
     Route: 058
     Dates: start: 20071201
  2. METHOTREXATE [Concomitant]
     Indication: RHEUMATOID ARTHRITIS
     Dosage: 4 TABS IN 2 DAYS OF THE WK
     Route: 048
     Dates: start: 20030101
  3. PREDNISONE TAB [Concomitant]
     Indication: RHEUMATOID ARTHRITIS
     Dosage: 5 MG DAILY
     Route: 048
     Dates: start: 19980101
  4. CAPTOPRIL [Concomitant]
     Indication: HYPERTENSION
     Dosage: 2 25MG TABS IN AM, 2 25 MG TABS AT NIGHT
     Route: 048
     Dates: start: 20060101

REACTIONS (2)
  - ARTHRALGIA [None]
  - ORAL DISORDER [None]
